FAERS Safety Report 17536616 (Version 1)
Quarter: 2020Q1

REPORT INFORMATION
  Report Type: Spontaneous
  Country: SK (occurrence: SK)
  Receive Date: 20200313
  Receipt Date: 20200313
  Transmission Date: 20200409
  Serious: Yes (Hospitalization)
  Sender: FDA-Public Use
  Company Number: SK-BRISTOL-MYERS SQUIBB COMPANY-BMS-2020-021433

PATIENT
  Age: 84 Year
  Sex: Female
  Weight: 52 kg

DRUGS (1)
  1. ELIQUIS [Suspect]
     Active Substance: APIXABAN
     Indication: CEREBROVASCULAR ACCIDENT PROPHYLAXIS
     Dosage: 2.5 MILLIGRAM, QD (1-0-0, LONG-TERM)
     Route: 048

REACTIONS (2)
  - Off label use [Unknown]
  - Normochromic normocytic anaemia [Unknown]

NARRATIVE: CASE EVENT DATE: 20200109
